FAERS Safety Report 7058295-4 (Version None)
Quarter: 2010Q4

REPORT INFORMATION
  Report Type: 
  Country: None (occurrence: None)
  Receive Date: 20101022
  Receipt Date: 20101011
  Transmission Date: 20110411
  Serious: Yes (Other)
  Sender: FDA-Public Use
  Company Number: DE-ELI_LILLY_AND_COMPANY-DE201008007432

PATIENT
  Sex: Male

DRUGS (4)
  1. CYMBALTA [Suspect]
     Dosage: 600 MG, UNK
     Dates: start: 20100825
  2. MEDIKINET [Concomitant]
     Dosage: 900 MG, UNK
     Dates: start: 20100825
  3. RITALIN [Concomitant]
     Dates: start: 20100825
  4. ALCOHOL [Concomitant]

REACTIONS (6)
  - DIASTOLIC HYPERTENSION [None]
  - ELECTROCARDIOGRAM QT PROLONGED [None]
  - HYPERHIDROSIS [None]
  - SUICIDE ATTEMPT [None]
  - SYSTOLIC HYPERTENSION [None]
  - TACHYCARDIA [None]
